FAERS Safety Report 8158642-6 (Version None)
Quarter: 2012Q1

REPORT INFORMATION
  Report Type: 
  Country: None (occurrence: None)
  Receive Date: 20120217
  Receipt Date: 20120203
  Transmission Date: 20120608
  Serious: Yes (Hospitalization, Other)
  Sender: FDA-Public Use
  Company Number: CIP11001276

PATIENT
  Age: 76 Year
  Sex: Female

DRUGS (11)
  1. FOSAMAX [Suspect]
     Indication: OSTEOPOROSIS POSTMENOPAUSAL
     Dosage: 10 MGDAILY, ORAL
     Route: 048
     Dates: start: 19951229, end: 20020701
  2. ACYCLOVIR /00587301/ (ACICLOVIR) [Concomitant]
  3. ACTONEL [Suspect]
     Indication: OSTEOPOROSIS POSTMENOPAUSAL
     Dosage: 35 MG ONCE WEEKLY, ORAL
     Route: 048
     Dates: start: 20021030, end: 20030101
  4. BONIVA [Suspect]
     Indication: OSTEOPENIA
     Dosage: 150 MG ONCE MONTHLY, ORAL
     Route: 048
     Dates: start: 20051229, end: 20090401
  5. BONIVA [Suspect]
     Indication: OSTEOPOROSIS POSTMENOPAUSAL
     Dosage: 150 MG ONCE MONTHLY, ORAL
     Route: 048
     Dates: start: 20051229, end: 20090401
  6. LIDODERM [Concomitant]
  7. DIDRONEL [Suspect]
     Indication: OSTEOPOROSIS POSTMENOPAUSAL
     Dosage: 200 MG TWICE DAILY  TIMES 2 WEEKS Q 10 WEEKS, ORAL
     Route: 048
     Dates: start: 19931221, end: 19951227
  8. ARTHROTEC /00372302 (DICLOFENAC SODIUM) [Concomitant]
  9. CEPHALEXIN /00145501/ (CEFALEXIN) [Concomitant]
  10. COZAAR [Concomitant]
  11. HYDROCODONE W/APAP (HYDROCODONE, PARACETAMOL) [Concomitant]

REACTIONS (17)
  - HAEMATOMA [None]
  - MUSCULAR WEAKNESS [None]
  - GAIT DISTURBANCE [None]
  - FALL [None]
  - FEMUR FRACTURE [None]
  - LOW TURNOVER OSTEOPATHY [None]
  - ADHESION [None]
  - SCAR [None]
  - FRACTURE DELAYED UNION [None]
  - FRACTURE DISPLACEMENT [None]
  - MYOPATHY [None]
  - PAIN [None]
  - ABDOMINAL DISCOMFORT [None]
  - OEDEMA PERIPHERAL [None]
  - STRESS FRACTURE [None]
  - BURSITIS [None]
  - HYPERPARATHYROIDISM PRIMARY [None]
